FAERS Safety Report 17808132 (Version 1)
Quarter: 2020Q2

REPORT INFORMATION
  Report Type: Spontaneous
  Country: US (occurrence: US)
  Receive Date: 20200520
  Receipt Date: 20200520
  Transmission Date: 20200714
  Serious: No
  Sender: FDA-Public Use
  Company Number: None

PATIENT
  Sex: Male

DRUGS (11)
  1. ASPIRIN 81MG [Concomitant]
     Active Substance: ASPIRIN
  2. ZYTIGA [Suspect]
     Active Substance: ABIRATERONE ACETATE
     Indication: PROSTATE CANCER
     Route: 048
     Dates: start: 20200220
  3. CLOPIDOGREL [Concomitant]
     Active Substance: CLOPIDOGREL BISULFATE
  4. LISINOPRIL. [Concomitant]
     Active Substance: LISINOPRIL
  5. PAROXETINE 10MG [Concomitant]
     Active Substance: PAROXETINE HYDROCHLORIDE
  6. ATORVASTATIN 40MG [Concomitant]
     Active Substance: ATORVASTATIN
  7. PANTOPRAZOLE 40MG [Concomitant]
     Active Substance: PANTOPRAZOLE SODIUM
  8. PREDNISONE 5MG [Concomitant]
     Active Substance: PREDNISONE
  9. TAMSULOSIN 0.4MG [Concomitant]
     Active Substance: TAMSULOSIN
  10. AMLODIPINE [Concomitant]
     Active Substance: AMLODIPINE BESYLATE
  11. CALCIUM + D [Concomitant]
     Active Substance: CALCIUM\VITAMIN D

REACTIONS (1)
  - Death [None]
